FAERS Safety Report 8183525-5 (Version None)
Quarter: 2012Q1

REPORT INFORMATION
  Report Type: 
  Country: None (occurrence: None)
  Receive Date: 20120305
  Receipt Date: 20120222
  Transmission Date: 20120608
  Serious: Yes (Hospitalization, Other)
  Sender: FDA-Public Use
  Company Number: US-ELI_LILLY_AND_COMPANY-US201105004153

PATIENT
  Sex: Female

DRUGS (12)
  1. FORTEO [Suspect]
     Dosage: 20 UG, QD
  2. OXYCODONE HCL [Concomitant]
  3. CELEBREX [Concomitant]
  4. LISINOPRIL [Concomitant]
  5. COUMADIN [Concomitant]
  6. FORTEO [Suspect]
     Dosage: 20 UG, QD
     Dates: start: 20110725
  7. FLUOXETINE [Concomitant]
  8. ACTIVELLA [Concomitant]
  9. CRESTOR [Concomitant]
  10. FORTEO [Suspect]
     Indication: OSTEOPOROSIS
     Dosage: 20 UG, QD
     Dates: end: 20110716
  11. FORTEO [Suspect]
     Dosage: 20 UG, QD
  12. CLONAZEPAM [Concomitant]

REACTIONS (5)
  - ARTHROPATHY [None]
  - SNEEZING [None]
  - SPEECH DISORDER [None]
  - SINUS DISORDER [None]
  - BLOOD PRESSURE FLUCTUATION [None]
